FAERS Safety Report 9838339 (Version 1)
Quarter: 2013Q4

REPORT INFORMATION
  Report Type: Spontaneous
  Country: US (occurrence: None)
  Receive Date: 20131206
  Receipt Date: 20131206
  Transmission Date: 20140711
  Serious: Yes (Hospitalization)
  Sender: FDA-Public Use
  Company Number: 362707

PATIENT
  Age: 59 Year
  Sex: Male
  Weight: 96.6 kg

DRUGS (6)
  1. NOVOLOG [Suspect]
     Indication: TYPE 2 DIABETES MELLITUS
     Dosage: 46 IU, UNK BEFORE MEALS, SUBCUTANEOUS
     Route: 058
  2. LANTUS (INSULIN GLARGINE) [Suspect]
     Indication: TYPE 2 DIABETES MELLITUS
     Dosage: 80 IU, QD AT BEDTIME, SUBCUTANEOUS
     Route: 058
  3. HYDROMORPHONE HYDROCHLORIDE (HYDROMORPHONE HYDROCHLORIDE) [Concomitant]
  4. PRINZIDE (HYDROCHLOROTHIAZIDE, LISINOPRIL DIHYDRATE) [Concomitant]
  5. FENOFIBRATE (FENOFIBRATE) (FENOFIBRATE) [Concomitant]
  6. OXYCODONE (OXYCODONE) [Concomitant]

REACTIONS (1)
  - Hypoglycaemia [None]
